FAERS Safety Report 8223159-7 (Version None)
Quarter: 2012Q1

REPORT INFORMATION
  Report Type: 
  Country: None (occurrence: None)
  Receive Date: 20120321
  Receipt Date: 20120319
  Transmission Date: 20120608
  Serious: No
  Sender: FDA-Public Use
  Company Number: US-BIOGENIDEC-2012BI009638

PATIENT
  Age: 32 Year
  Sex: Female

DRUGS (1)
  1. TYSABRI [Suspect]
     Indication: MULTIPLE SCLEROSIS
     Route: 042
     Dates: start: 20120124

REACTIONS (5)
  - HYPERHIDROSIS [None]
  - HOT FLUSH [None]
  - FUNGAL INFECTION [None]
  - EAR INFECTION [None]
  - URINARY TRACT INFECTION [None]
